FAERS Safety Report 7056454-8 (Version None)
Quarter: 2010Q4

REPORT INFORMATION
  Report Type: 
  Country: None (occurrence: None)
  Receive Date: 20101021
  Receipt Date: 20101014
  Transmission Date: 20110411
  Serious: Yes (Other)
  Sender: FDA-Public Use
  Company Number: AU-PFIZER INC-2010130728

PATIENT
  Sex: Female

DRUGS (6)
  1. CHAMPIX [Suspect]
     Dosage: UNK
     Dates: start: 20100901, end: 20101011
  2. MERSYNDOL [Concomitant]
     Dosage: UNK
  3. MAXOLON [Concomitant]
     Dosage: UNK
  4. MORPHINE [Concomitant]
     Dosage: UNK
  5. OXYCODONE [Concomitant]
     Dosage: UNK
  6. LEVOTHYROXINE SODIUM [Concomitant]
     Dosage: UNK

REACTIONS (7)
  - ABDOMINAL DISTENSION [None]
  - CHEST PAIN [None]
  - MALAISE [None]
  - OEDEMA PERIPHERAL [None]
  - RESTLESSNESS [None]
  - WEIGHT INCREASED [None]
  - WHEEZING [None]
